FAERS Safety Report 25603882 (Version 1)
Quarter: 2025Q3

REPORT INFORMATION
  Report Type: Spontaneous
  Country: EU (occurrence: EU)
  Receive Date: 20250725
  Receipt Date: 20250725
  Transmission Date: 20251020
  Serious: Yes (Life-Threatening, Other)
  Sender: CHEPLAPHARM
  Company Number: None

PATIENT
  Age: 54 Year
  Sex: Female

DRUGS (4)
  1. CAPECITABINE [Suspect]
     Active Substance: CAPECITABINE
     Indication: Breast cancer
     Dates: end: 20250620
  2. DOXORUBICIN [Suspect]
     Active Substance: DOXORUBICIN
  3. PEMBROLIZUMAB [Suspect]
     Active Substance: PEMBROLIZUMAB
     Dates: start: 20250117
  4. TAXOL [Suspect]
     Active Substance: PACLITAXEL
     Dates: start: 20250117

REACTIONS (5)
  - Type 1 diabetes mellitus [Not Recovered/Not Resolved]
  - Chest pain [Recovered/Resolved]
  - Hepatitis [Unknown]
  - Neuropathy peripheral [Unknown]
  - Skin reaction [Unknown]

NARRATIVE: CASE EVENT DATE: 20150506
